FAERS Safety Report 13992122 (Version 2)
Quarter: 2017Q4

REPORT INFORMATION
  Report Type: Spontaneous
  Country: US (occurrence: US)
  Receive Date: 20170920
  Receipt Date: 20171123
  Transmission Date: 20180321
  Serious: Yes (Other)
  Sender: FDA-Public Use
  Company Number: US-JNJFOC-20170815299

PATIENT
  Sex: Male

DRUGS (8)
  1. RISPERDAL [Suspect]
     Active Substance: RISPERIDONE
     Indication: PANIC DISORDER
     Dosage: V1:????VARYING DOSES OF 1 MG AND 2 MG.
     Route: 048
     Dates: start: 1995
  2. RISPERDAL [Suspect]
     Active Substance: RISPERIDONE
     Indication: SCHIZOAFFECTIVE DISORDER
     Route: 048
     Dates: start: 199501, end: 201608
  3. RISPERDAL [Suspect]
     Active Substance: RISPERIDONE
     Indication: PANIC DISORDER
     Route: 048
     Dates: start: 199501, end: 201608
  4. RISPERIDONE. [Suspect]
     Active Substance: RISPERIDONE
     Indication: PRODUCT USED FOR UNKNOWN INDICATION
     Route: 065
     Dates: start: 199501, end: 201608
  5. RISPERDAL [Suspect]
     Active Substance: RISPERIDONE
     Indication: SCHIZOAFFECTIVE DISORDER
     Dosage: V1:????VARYING DOSES OF 1 MG AND 2 MG.
     Route: 048
     Dates: start: 1995
  6. BUPROPION. [Suspect]
     Active Substance: BUPROPION
     Indication: PRODUCT USED FOR UNKNOWN INDICATION
     Route: 065
     Dates: start: 1995
  7. FLUOXETINE [Suspect]
     Active Substance: FLUOXETINE HYDROCHLORIDE
     Indication: PRODUCT USED FOR UNKNOWN INDICATION
     Route: 065
     Dates: start: 1995
  8. CLONAZEPAM. [Suspect]
     Active Substance: CLONAZEPAM
     Indication: PRODUCT USED FOR UNKNOWN INDICATION
     Route: 065
     Dates: start: 1995

REACTIONS (10)
  - Obesity [Unknown]
  - Tardive dyskinesia [Unknown]
  - Bone density decreased [Unknown]
  - Dyslipidaemia [Unknown]
  - Hyperprolactinaemia [Unknown]
  - Emotional distress [Unknown]
  - Gynaecomastia [Unknown]
  - Hypertension [Unknown]
  - Extrapyramidal disorder [Unknown]
  - Hyperglycaemia [Unknown]

NARRATIVE: CASE EVENT DATE: 1996
